FAERS Safety Report 8739601 (Version 2)
Quarter: 2012Q4

REPORT INFORMATION
  Report Type: 
  Country: US (occurrence: US)
  Receive Date: 20120823
  Receipt Date: 20121016
  Transmission Date: 20130627
  Serious: Yes (Hospitalization)
  Sender: FDA-Public Use
  Company Number: US-GLAXOSMITHKLINE-A0990088A

PATIENT
  Age: 65 Year
  Sex: Female

DRUGS (4)
  1. ADVAIR [Suspect]
     Indication: PRODUCT USED FOR UNKNOWN INDICATION
     Dosage: 1PUFF Twice per day
     Route: 055
  2. ZYVOX [Concomitant]
  3. AUGMENTIN [Concomitant]
  4. MEDROL DOSE PAK [Concomitant]

REACTIONS (5)
  - Drug ineffective [Unknown]
  - Dyspnoea [Unknown]
  - Hospitalisation [Unknown]
  - Inhalation therapy [Unknown]
  - Product quality issue [Unknown]
